FAERS Safety Report 6879185-3 (Version None)
Quarter: 2010Q3

REPORT INFORMATION
  Report Type: 
  Country: None (occurrence: None)
  Receive Date: 20100728
  Receipt Date: 20100726
  Transmission Date: 20110219
  Serious: Yes (Death, Hospitalization)
  Sender: FDA-Public Use
  Company Number: US-CEPHALON-2010003757

PATIENT
  Sex: Female
  Weight: 54 kg

DRUGS (2)
  1. TREANDA [Suspect]
     Indication: NON-HODGKIN'S LYMPHOMA RECURRENT
     Route: 042
     Dates: start: 20090326, end: 20090418
  2. RITUXAN [Concomitant]

REACTIONS (2)
  - ENCEPHALOPATHY [None]
  - MUSCULAR WEAKNESS [None]
